FAERS Safety Report 8258229-0 (Version None)
Quarter: 2012Q2

REPORT INFORMATION
  Report Type: 
  Country: None (occurrence: None)
  Receive Date: 20120404
  Receipt Date: 20120401
  Transmission Date: 20120825
  Serious: No
  Sender: FDA-Public Use
  Company Number: PHHY2012SA027697

PATIENT
  Age: 69 Year
  Sex: Male

DRUGS (3)
  1. GLYBURIDE [Concomitant]
     Dosage: 5 MG, DAILY
  2. TASIGNA [Suspect]
     Indication: CHRONIC MYELOID LEUKAEMIA
     Dosage: 800 MG, DAILY
     Route: 048
     Dates: start: 20120301
  3. PANTOPRAZOLE [Concomitant]
     Dosage: 40 MG, DAILY

REACTIONS (3)
  - RASH GENERALISED [None]
  - PAIN IN EXTREMITY [None]
  - NECK PAIN [None]
